FAERS Safety Report 22068580 (Version 8)
Quarter: 2024Q1

REPORT INFORMATION
  Report Type: Report from Study
  Country: JP (occurrence: JP)
  Receive Date: 20230307
  Receipt Date: 20240318
  Transmission Date: 20240410
  Serious: Yes (Death, Hospitalization, Other)
  Sender: FDA-Public Use
  Company Number: JP-ABBVIE-19S-087-2776146-00

PATIENT
  Age: 60 Year
  Sex: Male
  Weight: 79 kg

DRUGS (13)
  1. CARBIDOPA\LEVODOPA [Suspect]
     Active Substance: CARBIDOPA\LEVODOPA
     Indication: Parkinson^s disease
     Dosage: MD: 8 ML CD: 2 ML/HR ? 16 HRS ED: 1 ML/UNIT ? 3
     Route: 050
     Dates: start: 20190305
  2. CARBIDOPA\LEVODOPA [Suspect]
     Active Substance: CARBIDOPA\LEVODOPA
  3. EMPAGLIFLOZIN [Concomitant]
     Active Substance: EMPAGLIFLOZIN
     Indication: Product used for unknown indication
     Dosage: 10 MILLIGRAM
     Route: 048
     Dates: start: 20190530, end: 20200303
  4. LIXISENATIDE [Concomitant]
     Active Substance: LIXISENATIDE
     Indication: Diabetes mellitus
     Dosage: 20 MICROGRAM
     Route: 058
     Dates: start: 20200304
  5. ROTIGOTINE [Concomitant]
     Active Substance: ROTIGOTINE
     Indication: Parkinson^s disease
     Route: 062
  6. ROSUVASTATIN CALCIUM [Concomitant]
     Active Substance: ROSUVASTATIN CALCIUM
     Indication: Product used for unknown indication
     Dosage: 2.5 MILLIGRAM
     Route: 048
     Dates: start: 20190530
  7. Zonisamide ex [Concomitant]
     Indication: Parkinson^s disease
     Dosage: 25 MILLIGRAM
     Dates: start: 20200304
  8. METFORMIN HYDROCHLORIDE [Concomitant]
     Active Substance: METFORMIN HYDROCHLORIDE
     Indication: Product used for unknown indication
     Route: 048
  9. TRAZODONE HYDROCHLORIDE [Concomitant]
     Active Substance: TRAZODONE HYDROCHLORIDE
     Indication: Product used for unknown indication
     Dosage: 100 MILLIGRAM
     Route: 048
     Dates: start: 20190530
  10. SELEGILINE HYDROCHLORIDE [Concomitant]
     Active Substance: SELEGILINE HYDROCHLORIDE
     Indication: Parkinson^s disease
     Dosage: 10 MILLIGRAM
     Route: 048
     Dates: start: 20190530
  11. OLMESARTAN MEDOXOMIL [Concomitant]
     Active Substance: OLMESARTAN MEDOXOMIL
     Indication: Product used for unknown indication
     Dosage: 20 MILLIGRAM
     Route: 048
     Dates: start: 20190530
  12. NIFEDIPINE [Concomitant]
     Active Substance: NIFEDIPINE
     Indication: Product used for unknown indication
     Dosage: 20 MILLIGRAM
     Route: 048
     Dates: start: 20190530
  13. INSULIN GLARGINE [Concomitant]
     Active Substance: INSULIN GLARGINE
     Indication: Diabetes mellitus
     Dosage: (GENETICAL RECOMBINATION)
     Route: 058
     Dates: start: 20200304

REACTIONS (11)
  - Duodenal ulcer [Fatal]
  - Melaena [Fatal]
  - Multiple organ dysfunction syndrome [Fatal]
  - Stoma creation [Unknown]
  - Intestinal obstruction [Unknown]
  - Duodenal ulcer haemorrhage [Fatal]
  - Stoma site inflammation [Unknown]
  - Stoma site pain [Unknown]
  - Stoma site hypergranulation [Recovering/Resolving]
  - Excessive granulation tissue [Recovering/Resolving]
  - Stoma site oedema [Unknown]

NARRATIVE: CASE EVENT DATE: 20190406
